FAERS Safety Report 6235796-X (Version None)
Quarter: 2009Q2

REPORT INFORMATION
  Report Type: 
  Country: None (occurrence: None)
  Receive Date: 20090619
  Receipt Date: 20090608
  Transmission Date: 20091009
  Serious: Yes (Hospitalization)
  Sender: FDA-Public Use
  Company Number: FR-PFIZER INC-2009223710

PATIENT
  Age: 75 Year

DRUGS (10)
  1. TRIFLUCAN [Suspect]
     Indication: FUNGAL INFECTION
     Dosage: 400 MG, UNK
     Route: 042
     Dates: start: 20090412, end: 20090416
  2. COUMADIN [Interacting]
     Indication: DEEP VEIN THROMBOSIS
     Dosage: 3 MG, 1X/DAY
     Route: 048
     Dates: start: 20090301, end: 20090416
  3. COUMADIN [Interacting]
     Indication: THROMBOSIS PROPHYLAXIS
  4. OFLOCET [Interacting]
     Indication: SEPSIS
     Dosage: 400 MG, UNK
     Route: 048
     Dates: start: 20090411
  5. LANSOYL [Concomitant]
     Route: 048
  6. IRBESARTAN [Concomitant]
  7. KARDEGIC [Concomitant]
  8. LYRICA [Concomitant]
  9. DOLIPRANE [Concomitant]
  10. AMLOR [Concomitant]
     Dosage: 3 MG, 1X/DAY
     Route: 048
     Dates: start: 20090301, end: 20090416

REACTIONS (2)
  - DRUG INTERACTION [None]
  - INTERNATIONAL NORMALISED RATIO INCREASED [None]
